FAERS Safety Report 5170718-4 (Version None)
Quarter: 2006Q4

REPORT INFORMATION
  Report Type: 
  Country: None (occurrence: None)
  Receive Date: 20060919
  Receipt Date: 20060711
  Transmission Date: 20070319
  Serious: No
  Sender: FDA-Public Use
  Company Number: 2006US001117

PATIENT
  Age: 75 Year
  Sex: Female
  Weight: 96.6 kg

DRUGS (8)
  1. VESICARE [Suspect]
     Indication: URINARY INCONTINENCE
     Dosage: 5 MG, BID, ORAL
     Route: 048
     Dates: start: 20060428, end: 20060512
  2. LASIX [Concomitant]
  3. LOTENSIN [Concomitant]
  4. POTASSIUM (POTASSIUM CHLORIDE) [Concomitant]
  5. FOSAMAX [Concomitant]
  6. GLUCOSAMINE (COD-LIVER OIL) [Concomitant]
  7. VITAMINS [Concomitant]
  8. SPIRONOLACTONE [Concomitant]

REACTIONS (3)
  - CONSTIPATION [None]
  - DRY MOUTH [None]
  - OEDEMA PERIPHERAL [None]
